FAERS Safety Report 8364780-5 (Version None)
Quarter: 2012Q2

REPORT INFORMATION
  Report Type: 
  Country: None (occurrence: None)
  Receive Date: 20120516
  Receipt Date: 20120417
  Transmission Date: 20120825
  Serious: Yes (Hospitalization, Other)
  Sender: FDA-Public Use
  Company Number: US-ROCHE-1067948

PATIENT
  Sex: Female

DRUGS (5)
  1. ARANESP [Concomitant]
     Indication: ANAEMIA
     Dates: start: 20111228
  2. COPEGUS [Suspect]
     Indication: HEPATITIS C
     Dates: start: 20120210
  3. PEGINTERFERON ALFA-2B [Suspect]
     Indication: HEPATITIS C
     Dates: start: 20111030, end: 20120119
  4. PEGASYS [Suspect]
     Indication: HEPATITIS C
     Dates: start: 20120210
  5. TELAPREVIR [Suspect]
     Indication: HEPATITIS C
     Dates: start: 20111030, end: 20120119

REACTIONS (3)
  - WHITE BLOOD CELL DISORDER [None]
  - HAEMOGLOBIN DECREASED [None]
  - TRANSFUSION [None]
